FAERS Safety Report 4879801-1 (Version None)
Quarter: 2006Q1

REPORT INFORMATION
  Report Type: 
  Country: None (occurrence: None)
  Receive Date: 20060111
  Receipt Date: 20051228
  Transmission Date: 20060701
  Serious: Yes (Other)
  Sender: FDA-Public Use
  Company Number: 2004-DE-03986GD

PATIENT
  Age: 26 Year
  Sex: Male

DRUGS (3)
  1. AZATHIOPRINE [Suspect]
     Indication: CROHN'S DISEASE
     Dosage: 150 + 100 MG (NR), NR
     Dates: end: 19970601
  2. AZATHIOPRINE [Suspect]
     Indication: CROHN'S DISEASE
     Dosage: 150 + 100 MG (NR), NR
  3. AZATHIOPRINE [Suspect]
     Indication: CROHN'S DISEASE
     Dosage: 150 + 100 MG (NR), NR
     Dates: start: 19950701

REACTIONS (15)
  - ASCITES [None]
  - COAGULATION FACTOR VIII LEVEL INCREASED [None]
  - CONDITION AGGRAVATED [None]
  - CROHN'S DISEASE [None]
  - CYTOLYTIC HEPATITIS [None]
  - ENTEROVESICAL FISTULA [None]
  - HEPATIC FIBROSIS [None]
  - HEPATOMEGALY [None]
  - HYPOALBUMINAEMIA [None]
  - NODULAR REGENERATIVE HYPERPLASIA [None]
  - PNEUMATURIA [None]
  - SPLENOMEGALY [None]
  - THROMBOCYTOPENIA [None]
  - URINARY TRACT INFECTION [None]
  - VARICES OESOPHAGEAL [None]
